FAERS Safety Report 8294095-5 (Version None)
Quarter: 2012Q2

REPORT INFORMATION
  Report Type: 
  Country: None (occurrence: None)
  Receive Date: 20120418
  Receipt Date: 20120409
  Transmission Date: 20120825
  Serious: Yes (Other)
  Sender: FDA-Public Use
  Company Number: US-JNJFOC-20120404452

PATIENT
  Sex: Male
  Weight: 86.18 kg

DRUGS (7)
  1. PERCOCET [Concomitant]
     Indication: PAIN
     Dosage: 10 MG/325 MG AS NEEDED 2 TABLETS DAILY
     Route: 048
     Dates: start: 19980101
  2. NEURONTIN [Concomitant]
     Indication: PAIN
     Route: 048
     Dates: start: 19980101
  3. FENTANYL-100 [Suspect]
     Indication: COMPLEX REGIONAL PAIN SYNDROME
     Route: 062
     Dates: start: 20070101, end: 20090101
  4. FENTANYL-100 [Suspect]
     Route: 062
     Dates: start: 20120406
  5. KLONOPIN [Concomitant]
     Indication: PAIN
     Route: 048
     Dates: start: 19980101
  6. METHADONE HCL [Suspect]
     Indication: PRODUCT USED FOR UNKNOWN INDICATION
     Route: 048
     Dates: end: 20120406
  7. SOMA [Concomitant]
     Indication: PAIN
     Route: 048

REACTIONS (4)
  - PARKINSON'S DISEASE [None]
  - CHILLS [None]
  - BLOOD CHOLESTEROL INCREASED [None]
  - DRUG INEFFECTIVE [None]
